FAERS Safety Report 11695762 (Version 1)
Quarter: 2015Q4

REPORT INFORMATION
  Report Type: Spontaneous
  Country: US (occurrence: US)
  Receive Date: 20151104
  Receipt Date: 20151104
  Transmission Date: 20160304
  Serious: No
  Sender: FDA-Public Use
  Company Number: US-ELI_LILLY_AND_COMPANY-US201510004111

PATIENT
  Sex: Male

DRUGS (3)
  1. STRATTERA [Suspect]
     Active Substance: ATOMOXETINE HYDROCHLORIDE
     Indication: DISTURBANCE IN ATTENTION
     Dosage: 40 MG, QD
     Route: 065
  2. WELLBUTRIN [Concomitant]
     Active Substance: BUPROPION HYDROCHLORIDE
     Dosage: UNK, UNKNOWN
     Route: 065
  3. STRATTERA [Suspect]
     Active Substance: ATOMOXETINE HYDROCHLORIDE
     Dosage: 80 MG, QD
     Route: 065
     Dates: start: 201506

REACTIONS (5)
  - Off label use [Unknown]
  - Impulse-control disorder [Recovered/Resolved]
  - Psychomotor hyperactivity [Recovered/Resolved]
  - Elevated mood [Recovered/Resolved]
  - Dizziness [Recovered/Resolved]
